FAERS Safety Report 9233115 (Version 1)
Quarter: 2013Q2

REPORT INFORMATION
  Report Type: Report from Study
  Country: US (occurrence: US)
  Receive Date: 20130416
  Receipt Date: 20130416
  Transmission Date: 20140414
  Serious: Yes (Other)
  Sender: FDA-Public Use
  Company Number: PHEH2013US007588

PATIENT
  Age: 61 Year
  Sex: Male

DRUGS (1)
  1. GILENYA [Suspect]
     Indication: MULTIPLE SCLEROSIS
     Dosage: 0.5 MG, QD
     Route: 048
     Dates: start: 20130401

REACTIONS (4)
  - Chest pain [Recovered/Resolved]
  - Bradycardia [Recovered/Resolved]
  - Chest discomfort [Unknown]
  - Dyspepsia [Recovered/Resolved]
